FAERS Safety Report 10309259 (Version 12)
Quarter: 2018Q1

REPORT INFORMATION
  Report Type: Spontaneous
  Country: US (occurrence: US)
  Receive Date: 20140716
  Receipt Date: 20180222
  Transmission Date: 20180508
  Serious: Yes (Hospitalization, Other)
  Sender: FDA-Public Use
  Company Number: US-BIOMARINAP-US-2014-103699

PATIENT
  Sex: Female
  Weight: 44.45 kg

DRUGS (4)
  1. METOPROLOL SUCCINATE. [Concomitant]
     Active Substance: METOPROLOL SUCCINATE
     Indication: PRODUCT USED FOR UNKNOWN INDICATION
     Dosage: UNK
     Dates: start: 201706
  2. ALDURAZYME [Suspect]
     Active Substance: LARONIDASE
     Indication: MUCOPOLYSACCHARIDOSIS I
     Dosage: 23.2 MG, QW
     Route: 041
     Dates: start: 20030619
  3. YAZ [Concomitant]
     Active Substance: DROSPIRENONE\ETHINYL ESTRADIOL
     Indication: PRODUCT USED FOR UNKNOWN INDICATION
     Dosage: UNK
     Dates: start: 2015
  4. LASIX [Concomitant]
     Active Substance: FUROSEMIDE
     Indication: PRODUCT USED FOR UNKNOWN INDICATION
     Dosage: UNK
     Dates: start: 201706

REACTIONS (16)
  - Heart rate decreased [Unknown]
  - Tracheostomy [Not Recovered/Not Resolved]
  - Spinal cord compression [Not Recovered/Not Resolved]
  - Muscular weakness [Unknown]
  - Pain [Unknown]
  - Cardiac valve disease [Not Recovered/Not Resolved]
  - Pain in extremity [Not Recovered/Not Resolved]
  - Hernia [Unknown]
  - Respiratory arrest [Unknown]
  - Hypoaesthesia [Not Recovered/Not Resolved]
  - Unevaluable event [Unknown]
  - Muscle twitching [Unknown]
  - Toothache [Unknown]
  - Device occlusion [Not Recovered/Not Resolved]
  - Pneumonia [Unknown]
  - Stent placement [Unknown]
